FAERS Safety Report 4340066-0 (Version None)
Quarter: 2004Q2

REPORT INFORMATION
  Report Type: 
  Country: None (occurrence: None)
  Receive Date: 20040415
  Receipt Date: 20040415
  Transmission Date: 20050107
  Serious: Yes (Hospitalization)
  Sender: FDA-Public Use
  Company Number: None

PATIENT
  Age: 68 Year
  Sex: Female
  Weight: 84.369 kg

DRUGS (7)
  1. CISPLATIN [Suspect]
     Indication: CERVIX CARCINOMA
     Dosage: 40 MG/M2 1 A WK IV
     Route: 042
     Dates: start: 20040126, end: 20040301
  2. TAXOL [Suspect]
     Dosage: 40 MG/M2 1 A WK IV
     Route: 042
  3. ZESTRIL [Concomitant]
  4. GLUCAPHAGE [Concomitant]
  5. GLIPIZIDE [Concomitant]
  6. SYNTHROID [Concomitant]
  7. ASPIRIN [Concomitant]

REACTIONS (1)
  - TRANSIENT ISCHAEMIC ATTACK [None]
